FAERS Safety Report 25959249 (Version 1)
Quarter: 2025Q4

REPORT INFORMATION
  Report Type: Spontaneous
  Country: US (occurrence: US)
  Receive Date: 20251025
  Receipt Date: 20251025
  Transmission Date: 20260119
  Serious: No
  Sender: ALEXION PHARMACEUTICALS
  Company Number: US-AstraZeneca-CH-00977365AP

PATIENT
  Age: 63 Year
  Sex: Female

DRUGS (1)
  1. SYMBICORT [Suspect]
     Active Substance: BUDESONIDE\FORMOTEROL FUMARATE DIHYDRATE
     Dosage: 80 MICROGRAM, BID
     Route: 065
     Dates: start: 2023

REACTIONS (7)
  - Dry throat [Unknown]
  - Feeling jittery [Unknown]
  - Surgery [Unknown]
  - Overdose [Unknown]
  - Feeling jittery [Unknown]
  - Dry mouth [Unknown]
  - Dry throat [Unknown]

NARRATIVE: CASE EVENT DATE: 20250901
